FAERS Safety Report 20524120 (Version 2)
Quarter: 2023Q1

REPORT INFORMATION
  Report Type: Report from Study
  Country: US (occurrence: US)
  Receive Date: 20220228
  Receipt Date: 20230303
  Transmission Date: 20230418
  Serious: No
  Sender: FDA-Public Use
  Company Number: US-ORG100014127-2021001587

PATIENT
  Age: 26 Year
  Sex: Male

DRUGS (4)
  1. METOPIRONE [Suspect]
     Active Substance: METYRAPONE
     Indication: Cushing^s syndrome
     Dates: end: 2022
  2. LYSODREN [Concomitant]
     Active Substance: MITOTANE
     Indication: Adrenocortical carcinoma
     Dosage: 01 TABLET FOUR TIMES DAILY
     Dates: start: 20211102
  3. LYSODREN [Concomitant]
     Active Substance: MITOTANE
     Indication: Adrenocortical carcinoma
     Dosage: 02 TABLETS FOUR TIMES DAILY
  4. METOPROL TAR TAB 25MG [Concomitant]
     Indication: Product used for unknown indication

REACTIONS (1)
  - Off label use [Recovered/Resolved]
